FAERS Safety Report 23121882 (Version 3)
Quarter: 2023Q4

REPORT INFORMATION
  Report Type: Report from Study
  Country: US (occurrence: US)
  Receive Date: 20231030
  Receipt Date: 20231215
  Transmission Date: 20240109
  Serious: Yes (Other)
  Sender: FDA-Public Use
  Company Number: US-ABBVIE-5467616

PATIENT
  Sex: Male

DRUGS (5)
  1. HUMIRA [Suspect]
     Active Substance: ADALIMUMAB
     Indication: Hidradenitis
     Dosage: SECOND INJECTION ADMINISTERED 2 SYRINGES?LAST ADMIN DATE OCT 2023
     Route: 058
     Dates: start: 20231017, end: 20231017
  2. HUMIRA [Suspect]
     Active Substance: ADALIMUMAB
     Dosage: LAST ADMIN DATE OCT 2023
     Route: 058
     Dates: start: 20231024, end: 20231024
  3. HUMIRA [Suspect]
     Active Substance: ADALIMUMAB
     Indication: Hidradenitis
     Dosage: ADMINISTERED FOUR PEN, LAST ADMIN DATE OCT 2023?FORM STRENGTH: 40 MG
     Route: 058
     Dates: start: 20231003, end: 20231003
  4. HUMIRA [Suspect]
     Active Substance: ADALIMUMAB
     Dosage: FORM STRENGTH: 40 MG, LAST ADMIN DATE 2023
     Route: 058
     Dates: start: 20231031, end: 20231031
  5. HUMIRA [Suspect]
     Active Substance: ADALIMUMAB
     Route: 058
     Dates: start: 20231107

REACTIONS (5)
  - Rehabilitation therapy [Unknown]
  - Injection site pain [Unknown]
  - Inappropriate schedule of product administration [Unknown]
  - Intracranial infection [Recovered/Resolved]
  - White blood cell count decreased [Not Recovered/Not Resolved]

NARRATIVE: CASE EVENT DATE: 20230101
